FAERS Safety Report 11987465 (Version 1)
Quarter: 2016Q1

REPORT INFORMATION
  Report Type: Spontaneous
  Country: US (occurrence: None)
  Receive Date: 20160201
  Receipt Date: 20160201
  Transmission Date: 20160526
  Serious: No
  Sender: FDA-Public Use
  Company Number: None

PATIENT

DRUGS (2)
  1. AMLODIPINE [Suspect]
     Active Substance: AMLODIPINE BESYLATE
     Dosage: ORAL, 5MG, BOTTLE
     Route: 048
  2. AMITRIPTYLINE HCL [Suspect]
     Active Substance: AMITRIPTYLINE
     Dosage: 50 MG, ORAL, BOTTLE
     Route: 048

REACTIONS (4)
  - Drug dispensing error [None]
  - Intercepted drug administration error [None]
  - Product label on wrong product [None]
  - Drug dose omission [None]
